FAERS Safety Report 8326820-9 (Version None)
Quarter: 2012Q2

REPORT INFORMATION
  Report Type: 
  Country: None (occurrence: None)
  Receive Date: 20120501
  Receipt Date: 20120426
  Transmission Date: 20120825
  Serious: Yes (Other)
  Sender: FDA-Public Use
  Company Number: IT-PFIZER INC-2012100024

PATIENT
  Age: 8 Year
  Sex: Male

DRUGS (1)
  1. AZITHROMYCIN [Suspect]
     Indication: RHINITIS
     Dosage: 10 MG/KG DAILY
     Route: 048
     Dates: start: 20120403, end: 20120405

REACTIONS (2)
  - ASTHENIA [None]
  - TACHYCARDIA [None]
